FAERS Safety Report 19898394 (Version 1)
Quarter: 2021Q3

REPORT INFORMATION
  Report Type: Spontaneous
  Country: US (occurrence: US)
  Receive Date: 20210930
  Receipt Date: 20210930
  Transmission Date: 20211014
  Serious: No
  Sender: FDA-Public Use
  Company Number: US-PRINSTON PHARMACEUTICAL INC.-2021PRN00032

PATIENT
  Sex: Female

DRUGS (3)
  1. ADVIL [Suspect]
     Active Substance: IBUPROFEN
     Indication: SCIATICA
     Dosage: TAKES FREQUENTLY
  2. TONS OF OTHER MEDICATIONS [Concomitant]
  3. ESCITALOPRAM [Suspect]
     Active Substance: ESCITALOPRAM OXALATE
     Dosage: UNK

REACTIONS (5)
  - Scab [Not Recovered/Not Resolved]
  - Arthralgia [Unknown]
  - Rash [Not Recovered/Not Resolved]
  - Coeliac disease [Unknown]
  - Skin burning sensation [Not Recovered/Not Resolved]
